FAERS Safety Report 10691254 (Version 1)
Quarter: 2015Q1

REPORT INFORMATION
  Report Type: Spontaneous
  Country: IN (occurrence: IN)
  Receive Date: 20150105
  Receipt Date: 20150105
  Transmission Date: 20150720
  Serious: Yes (Other)
  Sender: FDA-Public Use
  Company Number: IN-MYLANLABS-2014M1015857

PATIENT

DRUGS (2)
  1. PHENYTOIN. [Suspect]
     Active Substance: PHENYTOIN
     Indication: GENERALISED TONIC-CLONIC SEIZURE
     Dosage: 300MG/DAY AND THEN THE DOSE WAS INCREASED TO 500MG/DAY
     Route: 065
  2. PHENYTOIN. [Suspect]
     Active Substance: PHENYTOIN
     Dosage: 500MG/DAY
     Route: 065

REACTIONS (3)
  - Gingival hypertrophy [Recovered/Resolved]
  - Opsoclonus myoclonus [Recovered/Resolved]
  - Toxicity to various agents [Recovered/Resolved]
